FAERS Safety Report 25528252 (Version 1)
Quarter: 2025Q3

REPORT INFORMATION
  Report Type: Report from Study
  Country: CA (occurrence: CA)
  Receive Date: 20250708
  Receipt Date: 20250708
  Transmission Date: 20251020
  Serious: Yes (Hospitalization)
  Sender: ABBVIE
  Company Number: CA-ABBVIE-6357525

PATIENT
  Age: 34 Year
  Sex: Male

DRUGS (1)
  1. RINVOQ [Suspect]
     Active Substance: UPADACITINIB
     Indication: Dermatitis atopic
     Route: 048

REACTIONS (11)
  - Psychotic disorder [Unknown]
  - Colitis [Unknown]
  - Pouchitis [Unknown]
  - Clostridium difficile infection [Unknown]
  - Gastrointestinal disorder [Unknown]
  - Abdominal discomfort [Not Recovered/Not Resolved]
  - Frequent bowel movements [Not Recovered/Not Resolved]
  - Anastomotic ulcer [Unknown]
  - Enteritis [Unknown]
  - Crohn^s disease [Unknown]
  - Rectal tenesmus [Not Recovered/Not Resolved]

NARRATIVE: CASE EVENT DATE: 20230101
